FAERS Safety Report 15813782 (Version 1)
Quarter: 2019Q1

REPORT INFORMATION
  Report Type: Spontaneous
  Country: US (occurrence: US)
  Receive Date: 20190111
  Receipt Date: 20190111
  Transmission Date: 20190417
  Serious: No
  Sender: FDA-Public Use
  Company Number: US-009507513-1901USA000895

PATIENT
  Sex: Male

DRUGS (2)
  1. INTRON A [Suspect]
     Active Substance: INTERFERON ALFA-2B
     Dosage: STRENGTH: 18 MM UNIT/3 ML, 0.25 ML (1.5 MILLON UNITS) UNDER THE SKIN, 3 TIMES WEEKLY
     Route: 058
  2. VALCHLOR [Suspect]
     Active Substance: MECHLORETHAMINE
     Dosage: UNK

REACTIONS (2)
  - Mass [Unknown]
  - Rash [Unknown]
